FAERS Safety Report 17724007 (Version 1)
Quarter: 2020Q2

REPORT INFORMATION
  Report Type: Spontaneous
  Country: US (occurrence: US)
  Receive Date: 20200429
  Receipt Date: 20200429
  Transmission Date: 20200714
  Serious: No
  Sender: FDA-Public Use
  Company Number: US-ABBVIE-19K-163-2978734-00

PATIENT
  Sex: Male
  Weight: 77.18 kg

DRUGS (4)
  1. ANDROGEL [Suspect]
     Active Substance: TESTOSTERONE
     Route: 061
  2. ATORVASTATIN [Concomitant]
     Active Substance: ATORVASTATIN
     Indication: BLOOD CHOLESTEROL INCREASED
  3. ANDROGEL [Suspect]
     Active Substance: TESTOSTERONE
     Indication: BLOOD TESTOSTERONE DECREASED
     Route: 061
  4. ANDROGEL [Suspect]
     Active Substance: TESTOSTERONE
     Indication: HORMONE LEVEL ABNORMAL
     Route: 061

REACTIONS (2)
  - Drug ineffective [Recovered/Resolved]
  - Drug ineffective [Recovered/Resolved]

NARRATIVE: CASE EVENT DATE: 2013
